FAERS Safety Report 8837025 (Version 1)
Quarter: 2012Q4

REPORT INFORMATION
  Report Type: 
  Country: US (occurrence: US)
  Receive Date: 20121012
  Receipt Date: 20121012
  Transmission Date: 20130627
  Serious: No
  Sender: FDA-Public Use
  Company Number: US-MYLANLABS-2012S1012892

PATIENT
  Age: 51 Year
  Sex: Female
  Weight: 45.36 kg

DRUGS (3)
  1. IBANDRONATE SODIUM TABLETS [Suspect]
     Indication: OSTEOPOROSIS
     Route: 048
     Dates: start: 20120601
  2. CLONAZEPAM [Concomitant]
     Indication: ANXIETY
  3. VICODIN [Concomitant]
     Indication: BONE PAIN
     Dates: start: 2009

REACTIONS (1)
  - Pain in jaw [Not Recovered/Not Resolved]
